FAERS Safety Report 6751347-5 (Version None)
Quarter: 2010Q2

REPORT INFORMATION
  Report Type: 
  Country: None (occurrence: None)
  Receive Date: 20100602
  Receipt Date: 20100526
  Transmission Date: 20101027
  Serious: Yes (Hospitalization)
  Sender: FDA-Public Use
  Company Number: US-SANOFI-AVENTIS-2010SA030413

PATIENT
  Age: 75 Year
  Sex: Male

DRUGS (5)
  1. MULTAQ [Suspect]
     Indication: ATRIAL FIBRILLATION
     Route: 048
     Dates: start: 20100412, end: 20100414
  2. LASIX [Concomitant]
     Route: 065
     Dates: end: 20100401
  3. LASIX [Concomitant]
     Route: 065
     Dates: start: 20100401
  4. COREG [Concomitant]
  5. HYDRALAZINE HCL [Concomitant]

REACTIONS (3)
  - DYSGEUSIA [None]
  - OEDEMA PERIPHERAL [None]
  - SCROTAL SWELLING [None]
